FAERS Safety Report 5569613-8 (Version None)
Quarter: 2007Q4

REPORT INFORMATION
  Report Type: 
  Country: None (occurrence: None)
  Receive Date: 20071220
  Receipt Date: 20071214
  Transmission Date: 20080405
  Serious: Yes (Hospitalization, Other)
  Sender: FDA-Public Use
  Company Number: US-ALLERGAN-0702158US

PATIENT
  Sex: Male
  Weight: 86.168 kg

DRUGS (4)
  1. BOTOX [Suspect]
     Indication: PAIN
     Dosage: 400 UNITS, SINGLE
     Route: 030
     Dates: start: 20070206, end: 20070206
  2. BOTOX [Suspect]
     Indication: DYSTONIA
  3. CELEBREX [Concomitant]
     Indication: PAIN
     Dosage: 200 MG, QD
     Route: 048
  4. TYLENOL W/ CODEINE NO. 3 [Concomitant]
     Indication: PAIN

REACTIONS (14)
  - ANXIETY [None]
  - BLOOD PRESSURE INCREASED [None]
  - DIZZINESS [None]
  - DYSARTHRIA [None]
  - DYSPHAGIA [None]
  - DYSPHONIA [None]
  - DYSPNOEA [None]
  - FATIGUE [None]
  - HEADACHE [None]
  - MALAISE [None]
  - MANTLE CELL LYMPHOMA [None]
  - MUSCLE SPASTICITY [None]
  - NECK PAIN [None]
  - PAIN IN EXTREMITY [None]
